FAERS Safety Report 8326809-X (Version None)
Quarter: 2012Q2

REPORT INFORMATION
  Report Type: 
  Country: None (occurrence: None)
  Receive Date: 20120501
  Receipt Date: 20110809
  Transmission Date: 20120825
  Serious: No
  Sender: FDA-Public Use
  Company Number: US-SANOFI-AVENTIS-2011SA054359

PATIENT
  Age: 76 Year
  Sex: Female

DRUGS (1)
  1. APIDRA [Suspect]
     Indication: TYPE 2 DIABETES MELLITUS
     Dosage: TOOK 6/12/14 DAILY
     Route: 058
     Dates: start: 20100101

REACTIONS (1)
  - FEELING COLD [None]
